FAERS Safety Report 19908043 (Version 1)
Quarter: 2021Q4

REPORT INFORMATION
  Report Type: Spontaneous
  Country: SA (occurrence: SA)
  Receive Date: 20211001
  Receipt Date: 20211001
  Transmission Date: 20220304
  Serious: Yes (Other)
  Sender: FDA-Public Use
  Company Number: SA-PFIZER INC-202101246051

PATIENT
  Sex: Male

DRUGS (2)
  1. AVIBACTAM SODIUM\CEFTAZIDIME [Suspect]
     Active Substance: AVIBACTAM SODIUM\CEFTAZIDIME
     Indication: Biliary abscess
     Dosage: UNK
  2. AVIBACTAM SODIUM\CEFTAZIDIME [Suspect]
     Active Substance: AVIBACTAM SODIUM\CEFTAZIDIME
     Indication: Enterobacter infection

REACTIONS (3)
  - White blood cell count increased [Recovered/Resolved]
  - Altered state of consciousness [Recovered/Resolved]
  - Eosinophil count increased [Recovered/Resolved]
